FAERS Safety Report 9782383 (Version 3)
Quarter: 2014Q1

REPORT INFORMATION
  Report Type: Spontaneous
  Country: GB (occurrence: GB)
  Receive Date: 20131226
  Receipt Date: 20140125
  Transmission Date: 20141002
  Serious: Yes (Other)
  Sender: FDA-Public Use
  Company Number: GB-VERTEX PHARMACEUTICALS INC-2013-010915

PATIENT
  Age: 53 Year
  Sex: Male

DRUGS (3)
  1. INCIVO [Suspect]
     Indication: HEPATITIS C
     Dosage: 750 MG, UNK
     Route: 048
     Dates: start: 20120807
  2. COPEGUS [Suspect]
     Indication: HEPATITIS C
     Dosage: 1200 MG, UNK
     Route: 048
     Dates: start: 20120807, end: 20130708
  3. PEGASYS [Suspect]
     Indication: HEPATITIS C
     Dosage: 180 ?G, UNK
     Route: 058
     Dates: start: 20120807, end: 20130708

REACTIONS (2)
  - Haemoglobin decreased [Recovered/Resolved]
  - Rash [Unknown]
